FAERS Safety Report 11430458 (Version 1)
Quarter: 2015Q3

REPORT INFORMATION
  Report Type: Spontaneous
  Country: US (occurrence: US)
  Receive Date: 20150828
  Receipt Date: 20150828
  Transmission Date: 20151125
  Serious: No
  Sender: FDA-Public Use
  Company Number: US-ROCHE-1231314

PATIENT
  Age: 52 Year
  Sex: Male

DRUGS (3)
  1. RIBAVIRIN. [Suspect]
     Active Substance: RIBAVIRIN
     Indication: HEPATITIS C
     Dosage: TAKES IN MORNING
     Route: 048
     Dates: start: 20121215
  2. RIBAVIRIN. [Suspect]
     Active Substance: RIBAVIRIN
     Dosage: TAKES IN EVENING
     Route: 048
     Dates: start: 20121215
  3. PEGASYS [Suspect]
     Active Substance: PEGINTERFERON ALFA-2A
     Indication: HEPATITIS C
     Route: 058
     Dates: start: 20121215

REACTIONS (5)
  - Dyspnoea [Unknown]
  - Nausea [Unknown]
  - Insomnia [Unknown]
  - Vision blurred [Unknown]
  - Rash [Unknown]

NARRATIVE: CASE EVENT DATE: 20130531
